FAERS Safety Report 5488890-5 (Version None)
Quarter: 2007Q4

REPORT INFORMATION
  Report Type: 
  Country: None (occurrence: None)
  Receive Date: 20071015
  Receipt Date: 20070622
  Transmission Date: 20080405
  Serious: No
  Sender: FDA-Public Use
  Company Number: 2007SP002328

PATIENT
  Age: 84 Year
  Sex: Male
  Weight: 88.4514 kg

DRUGS (6)
  1. LUNESTA [Suspect]
     Indication: SLEEP DISORDER
     Dosage: 3 MG;HS;ORAL 6 MG;1X; ORAL
     Route: 048
     Dates: start: 20070617, end: 20070620
  2. LUNESTA [Suspect]
     Indication: SLEEP DISORDER
     Dosage: 3 MG;HS;ORAL 6 MG;1X; ORAL
     Route: 048
     Dates: start: 20070621, end: 20070621
  3. GLUCOPHAGE [Concomitant]
  4. ALTACE [Concomitant]
  5. TAMSULOSIN HCL [Concomitant]
  6. ASACOL [Concomitant]

REACTIONS (2)
  - DRUG INEFFECTIVE [None]
  - INSOMNIA [None]
